FAERS Safety Report 14224313 (Version 1)
Quarter: 2017Q4

REPORT INFORMATION
  Report Type: Spontaneous
  Country: ES (occurrence: ES)
  Receive Date: 20171126
  Receipt Date: 20171126
  Transmission Date: 20180321
  Serious: Yes (Other)
  Sender: FDA-Public Use
  Company Number: ES-ASTRAZENECA-2017SF18477

PATIENT
  Sex: Female

DRUGS (1)
  1. OLAPARIB. [Suspect]
     Active Substance: OLAPARIB
     Route: 048

REACTIONS (1)
  - Myelodysplastic syndrome [Unknown]
